FAERS Safety Report 4664063-0 (Version None)
Quarter: 2005Q2

REPORT INFORMATION
  Report Type: 
  Country: None (occurrence: None)
  Receive Date: 20050516
  Receipt Date: 20050516
  Transmission Date: 20051028
  Serious: Yes (Life-Threatening, Other)
  Sender: FDA-Public Use
  Company Number: None

PATIENT
  Age: 76 Year
  Sex: Female
  Weight: 60.782 kg

DRUGS (5)
  1. VIOXX [Suspect]
     Indication: ARTHRITIS
     Dosage: 1 X A DAY
     Dates: start: 20030106
  2. CARDURA [Concomitant]
  3. NORVASC [Concomitant]
  4. HYDROCHLOROTHIAZIDE [Concomitant]
  5. CHOLESTGRAMINE [Concomitant]

REACTIONS (1)
  - MITRAL VALVE INCOMPETENCE [None]
